FAERS Safety Report 8469250-1 (Version None)
Quarter: 2012Q2

REPORT INFORMATION
  Report Type: 
  Country: None (occurrence: None)
  Receive Date: 20120621
  Receipt Date: 20120429
  Transmission Date: 20120825
  Serious: Yes (Disabling, Other)
  Sender: FDA-Public Use
  Company Number: PL-021953

PATIENT
  Age: 59 Year
  Sex: Female
  Weight: 82.5 kg

DRUGS (5)
  1. OMEPRAZOLE [Concomitant]
  2. CHLORAMBUCIL (CHLORAMBUCIL)(UNKNOWN) [Suspect]
     Indication: CHRONIC LYMPHOCYTIC LEUKAEMIA
     Dosage: 10 MGM2 AT DAYS 1-7 EVERY 21 DAYS ORAL
     Route: 048
     Dates: start: 20090817
  3. CALCIUM CARBONATE  (UNKNOWN) [Concomitant]
  4. ALFACALCIDOL (UNKNOWN) [Concomitant]
  5. OAT EOMAX( UNKNOWN) [Concomitant]

REACTIONS (2)
  - ANAEMIA HAEMOLYTIC AUTOIMMUNE [None]
  - B-CELL SMALL LYMPHOCYTIC LYMPHOMA [None]
